FAERS Safety Report 12569873 (Version 1)
Quarter: 2016Q3

REPORT INFORMATION
  Report Type: Spontaneous
  Country: None (occurrence: None)
  Receive Date: 20160718
  Receipt Date: 20160718
  Transmission Date: 20161109
  Serious: Yes (Other)
  Sender: FDA-Public Use
  Company Number: None

PATIENT
  Sex: Female

DRUGS (1)
  1. MIRENA [Suspect]
     Active Substance: LEVONORGESTREL
     Indication: CONTRACEPTION
     Route: 067
     Dates: start: 20160525

REACTIONS (7)
  - Food craving [None]
  - Depression [None]
  - Fatigue [None]
  - Suicidal ideation [None]
  - Decreased activity [None]
  - Irritability [None]
  - Mood swings [None]

NARRATIVE: CASE EVENT DATE: 20160715
